FAERS Safety Report 12933224 (Version 2)
Quarter: 2016Q4

REPORT INFORMATION
  Report Type: Report from Study
  Country: US (occurrence: US)
  Receive Date: 20161111
  Receipt Date: 20161130
  Transmission Date: 20170207
  Serious: Yes (Other)
  Sender: FDA-Public Use
  Company Number: US-BRISTOL-MYERS SQUIBB COMPANY-BMS-2016-086952

PATIENT
  Sex: Female

DRUGS (2)
  1. BENADRYL [Concomitant]
     Active Substance: DIPHENHYDRAMINE HYDROCHLORIDE
     Indication: PRODUCT USED FOR UNKNOWN INDICATION
     Dosage: 20 MG, QD
     Route: 065
  2. NIVOLUMAB [Suspect]
     Active Substance: NIVOLUMAB
     Indication: MALIGNANT MELANOMA
     Dosage: UNK, Q2WK
     Route: 042
     Dates: start: 20160606

REACTIONS (14)
  - Asthenia [Unknown]
  - Somnolence [Unknown]
  - Hypoacusis [Unknown]
  - Polymyalgia rheumatica [Recovering/Resolving]
  - Diarrhoea [Unknown]
  - Night sweats [Unknown]
  - Nausea [Unknown]
  - Dry mouth [Unknown]
  - Abdominal pain [Unknown]
  - Urinary tract infection [Unknown]
  - Hyperkalaemia [Unknown]
  - Pruritus [Unknown]
  - Joint stiffness [Unknown]
  - Vision blurred [Unknown]
